FAERS Safety Report 8927111 (Version 1)
Quarter: 2012Q4

REPORT INFORMATION
  Report Type: 
  Country: US (occurrence: US)
  Receive Date: 20121127
  Receipt Date: 20121127
  Transmission Date: 20130627
  Serious: No
  Sender: FDA-Public Use
  Company Number: US-MYLANLABS-2012S1020004

PATIENT
  Age: 70 Year
  Sex: Female

DRUGS (5)
  1. MONTELUKAST SODIUM TABLETS [Suspect]
     Indication: ASTHMA
     Route: 048
     Dates: start: 20120830
  2. ZETIA [Concomitant]
     Indication: BLOOD CHOLESTEROL INCREASED
     Route: 048
  3. ASTELIN [Concomitant]
     Indication: MULTIPLE ALLERGIES
     Dosage: 1 squirt each nostril
     Route: 045
  4. NASONEX [Concomitant]
     Indication: MULTIPLE ALLERGIES
     Dosage: 1 squirt each nostril
     Route: 045
  5. QVAR [Concomitant]
     Indication: ASTHMA
     Dosage: 2 squirts each nostril
     Route: 045

REACTIONS (6)
  - Headache [Not Recovered/Not Resolved]
  - Increased appetite [Not Recovered/Not Resolved]
  - Oropharyngeal pain [Not Recovered/Not Resolved]
  - Dizziness [Not Recovered/Not Resolved]
  - Neck pain [Not Recovered/Not Resolved]
  - Reaction to drug excipients [Not Recovered/Not Resolved]
